FAERS Safety Report 13208783 (Version 1)
Quarter: 2017Q1

REPORT INFORMATION
  Report Type: Spontaneous
  Country: US (occurrence: US)
  Receive Date: 20170209
  Receipt Date: 20170209
  Transmission Date: 20170428
  Serious: No
  Sender: FDA-Public Use
  Company Number: US-ROCHE-1727440

PATIENT
  Sex: Male

DRUGS (1)
  1. NUTROPIN AQ [Suspect]
     Active Substance: SOMATROPIN
     Indication: HYPOPITUITARISM
     Dosage: NUSPIN, 10 MG/2 ML
     Route: 058
     Dates: start: 20151027

REACTIONS (4)
  - Nausea [Unknown]
  - Restlessness [Unknown]
  - Nervousness [Unknown]
  - Acne [Unknown]
